FAERS Safety Report 8269794-1 (Version None)
Quarter: 2012Q2

REPORT INFORMATION
  Report Type: 
  Country: None (occurrence: None)
  Receive Date: 20120406
  Receipt Date: 20120323
  Transmission Date: 20120825
  Serious: Yes (Death, Other)
  Sender: FDA-Public Use
  Company Number: 2012AP000833

PATIENT
  Sex: Female

DRUGS (7)
  1. ZOLPIDEM TARTRATE [Suspect]
     Indication: INSOMNIA
  2. ZOLPIDEM TARTRATE [Suspect]
     Indication: DEPRESSION
  3. ABILIFY [Suspect]
  4. ZOLPIDEM TARTRATE [Suspect]
     Indication: DEPRESSION
  5. ZOLPIDEM TARTRATE [Suspect]
     Indication: INSOMNIA
  6. FLUOXETINE HYDROCHLORIDE [Suspect]
  7. FLURAZEPAM [Suspect]

REACTIONS (9)
  - OVERDOSE [None]
  - DISCOMFORT [None]
  - QUALITY OF LIFE DECREASED [None]
  - MENTAL DISORDER [None]
  - CONDITION AGGRAVATED [None]
  - PAIN [None]
  - SUICIDE ATTEMPT [None]
  - ANXIETY [None]
  - COMPLETED SUICIDE [None]
